FAERS Safety Report 22063713 (Version 1)
Quarter: 2023Q1

REPORT INFORMATION
  Report Type: Report from Study
  Country: RS (occurrence: RS)
  Receive Date: 20230306
  Receipt Date: 20230306
  Transmission Date: 20230417
  Serious: Yes (Other)
  Sender: FDA-Public Use
  Company Number: RS-TAKEDA-2023TUS022124

PATIENT
  Age: 48 Year
  Sex: Male
  Weight: 106 kg

DRUGS (9)
  1. VEDOLIZUMAB [Suspect]
     Active Substance: VEDOLIZUMAB
     Indication: Colitis ulcerative
     Dosage: 300 MILLIGRAM
     Route: 042
     Dates: start: 20210608, end: 20220920
  2. CIPROFLOXACIN [Concomitant]
     Active Substance: CIPROFLOXACIN
     Dosage: UNK
     Dates: start: 202208
  3. MIDOL [Concomitant]
     Active Substance: IBUPROFEN
     Dosage: UNK
     Dates: start: 202208
  4. ELFONIS [Concomitant]
     Dosage: UNK
     Dates: start: 202209
  5. DIPROPHOS [Concomitant]
     Active Substance: BETAMETHASONE DIPROPIONATE\BETAMETHASONE SODIUM PHOSPHATE
     Indication: Oligoarthritis
     Dosage: 7 MILLIGRAM, Q3WEEKS
     Route: 030
     Dates: start: 20220912
  6. PENTASA [Concomitant]
     Active Substance: MESALAMINE
     Indication: Colitis ulcerative
     Dosage: 4 GRAM, QD
     Route: 048
     Dates: start: 201904
  7. Salofalk [Concomitant]
     Indication: Colitis ulcerative
     Dosage: 1 GRAM, QOD
     Route: 054
     Dates: start: 201904
  8. Salofalk [Concomitant]
     Dosage: 4 GRAM
     Route: 054
     Dates: start: 201904
  9. BALACOL [Concomitant]
     Indication: Clostridium difficile infection
     Dosage: UNK
     Route: 048
     Dates: start: 202208

REACTIONS (4)
  - Synovial rupture [Recovering/Resolving]
  - Oligoarthritis [Recovering/Resolving]
  - Loss of therapeutic response [Recovering/Resolving]
  - Pyrexia [Recovering/Resolving]

NARRATIVE: CASE EVENT DATE: 20220612
